FAERS Safety Report 23162861 (Version 1)
Quarter: 2023Q4

REPORT INFORMATION
  Report Type: Spontaneous
  Country: DE (occurrence: DE)
  Receive Date: 20231109
  Receipt Date: 20231109
  Transmission Date: 20240109
  Serious: Yes (Other)
  Sender: FDA-Public Use
  Company Number: None

PATIENT

DRUGS (1)
  1. RAMIPRIL [Suspect]
     Active Substance: RAMIPRIL
     Indication: Hypertension
     Dosage: 10 MG/D
     Route: 048
     Dates: start: 20230201, end: 20230218

REACTIONS (3)
  - Suicidal ideation [Unknown]
  - Obsessive rumination [Unknown]
  - Depression [Unknown]

NARRATIVE: CASE EVENT DATE: 20230210
